FAERS Safety Report 10093867 (Version 1)
Quarter: 2014Q2

REPORT INFORMATION
  Report Type: Spontaneous
  Country: US (occurrence: US)
  Receive Date: 20140421
  Receipt Date: 20140421
  Transmission Date: 20141212
  Serious: No
  Sender: FDA-Public Use
  Company Number: US-SANOFI-AVENTIS-2013SA085095

PATIENT
  Age: 63 Year
  Sex: Female
  Weight: 58 kg

DRUGS (2)
  1. ALLEGRA [Suspect]
     Indication: URTICARIA
     Route: 048
     Dates: start: 201301
  2. ALLEGRA [Suspect]
     Indication: URTICARIA
     Route: 048
     Dates: start: 201301

REACTIONS (3)
  - Therapeutic response decreased [Unknown]
  - Drug prescribing error [Unknown]
  - Extra dose administered [Unknown]
